FAERS Safety Report 8617597 (Version 2)
Quarter: 2014Q1

REPORT INFORMATION
  Report Type: Spontaneous
  Country: US (occurrence: None)
  Receive Date: 20120323
  Receipt Date: 20140306
  Transmission Date: 20141002
  Serious: Yes (Other)
  Sender: FDA-Public Use
  Company Number: 163-21880-11112654

PATIENT
  Age: 71 Year
  Sex: Female
  Weight: 77.6 kg

DRUGS (7)
  1. REVLIMID [Suspect]
     Indication: PLASMA CELL MYELOMA
     Dosage: 15 MG, 231 IN 28 D, PO
     Route: 048
     Dates: start: 20100201, end: 20100623
  2. AMLODIPINE BESYLATE (AMLODIPINE BESILATE) [Concomitant]
  3. PROMETHAZINE [Concomitant]
  4. ASPIRIN (ACETYLSALICYLIC ACID) [Concomitant]
  5. WARFARIN [Concomitant]
  6. LUNESTA (ESZOPICLONE) [Concomitant]
  7. MULTIVITAMINS [Concomitant]

REACTIONS (2)
  - Thrombosis [None]
  - Extra dose administered [None]
